FAERS Safety Report 12194114 (Version 1)
Quarter: 2016Q1

REPORT INFORMATION
  Report Type: Spontaneous
  Country: US (occurrence: None)
  Receive Date: 20160318
  Receipt Date: 20160318
  Transmission Date: 20160526
  Serious: Yes (Hospitalization, Disabling, Other)
  Sender: FDA-Public Use
  Company Number: None

PATIENT
  Age: 38 Year
  Sex: Female
  Weight: 65.32 kg

DRUGS (5)
  1. MESH [Concomitant]
  2. INTERSTIM [Concomitant]
  3. MAGNESIUM [Concomitant]
     Active Substance: MAGNESIUM
  4. VITAMIN D [Concomitant]
     Active Substance: CHOLECALCIFEROL
  5. LEVAQUIN [Suspect]
     Active Substance: LEVOFLOXACIN
     Indication: SINUSITIS
     Dosage: 1 PILL ONCE DAILY??3 PILLS OVER 3 DAYS?
     Route: 048

REACTIONS (20)
  - Intervertebral disc protrusion [None]
  - Arthropathy [None]
  - Cognitive disorder [None]
  - Vomiting [None]
  - Migraine [None]
  - Arthralgia [None]
  - Hallucination [None]
  - Anxiety [None]
  - Abasia [None]
  - Myalgia [None]
  - Lacrimation increased [None]
  - General physical health deterioration [None]
  - Pain in extremity [None]
  - Vision blurred [None]
  - Arthritis [None]
  - Sciatic nerve injury [None]
  - Muscle disorder [None]
  - Urinary incontinence [None]
  - Spinal disorder [None]
  - Tendon disorder [None]

NARRATIVE: CASE EVENT DATE: 20061129
